FAERS Safety Report 7595255-9 (Version None)
Quarter: 2011Q3

REPORT INFORMATION
  Report Type: 
  Country: None (occurrence: None)
  Receive Date: 20110707
  Receipt Date: 20110627
  Transmission Date: 20111222
  Serious: Yes (Hospitalization)
  Sender: FDA-Public Use
  Company Number: JP-SANOFI-AVENTIS-2011SA040933

PATIENT
  Age: 63 Year
  Sex: Male

DRUGS (5)
  1. OXALIPLATIN [Suspect]
     Indication: COLON CANCER
     Route: 041
  2. FLUOROURACIL [Suspect]
     Route: 041
  3. AVASTIN [Suspect]
     Indication: COLON CANCER
     Dosage: FREQUENCY: 1 PER 2 WEEKS
     Route: 041
     Dates: start: 20110426
  4. FLUOROURACIL [Suspect]
     Indication: COLON CANCER
     Route: 040
  5. LEUCOVORIN CALCIUM [Suspect]
     Indication: COLON CANCER
     Route: 041

REACTIONS (1)
  - GASTROINTESTINAL PERFORATION [None]
